FAERS Safety Report 9549240 (Version 3)
Quarter: 2013Q4

REPORT INFORMATION
  Report Type: Spontaneous
  Country: US (occurrence: CA)
  Receive Date: 20130924
  Receipt Date: 20131007
  Transmission Date: 20140711
  Serious: Yes (Other)
  Sender: FDA-Public Use
  Company Number: CA-TEVA-434187USA

PATIENT
  Age: 30 Year
  Sex: Male
  Weight: 158.9 kg

DRUGS (3)
  1. CLINDAMYCIN [Suspect]
     Indication: LOCALISED INFECTION
     Dosage: 1200 MILLIGRAM DAILY;
     Route: 048
     Dates: start: 20130918, end: 201309
  2. CLINDAMYCIN [Suspect]
     Indication: BACTERIAL INFECTION
  3. CLINDAMYCIN [Suspect]
     Indication: LOCALISED INFECTION

REACTIONS (7)
  - Blindness [Recovered/Resolved]
  - Pain in extremity [Recovered/Resolved]
  - Thinking abnormal [Recovered/Resolved]
  - Presyncope [Recovered/Resolved]
  - Burning sensation [Recovered/Resolved]
  - Vision blurred [Recovered/Resolved]
  - Nausea [Recovered/Resolved]
